FAERS Safety Report 13681865 (Version 1)
Quarter: 2017Q2

REPORT INFORMATION
  Report Type: Spontaneous
  Country: US (occurrence: US)
  Receive Date: 20170623
  Receipt Date: 20170623
  Transmission Date: 20170830
  Serious: Yes (Life-Threatening, Hospitalization, Other)
  Sender: FDA-Public Use
  Company Number: None

PATIENT
  Age: 56 Year
  Sex: Male
  Weight: 81.65 kg

DRUGS (3)
  1. PROBIOTIC [Concomitant]
     Active Substance: PROBIOTICS NOS
  2. MOXIFLOXACIN TAB 400MG, 400 MG [Suspect]
     Active Substance: MOXIFLOXACIN
     Indication: COUGH
     Dosage: ?          QUANTITY:1 ?L?NBTFLL?;?1 TABLET DAILY ONCE DAILY BY MOUTH?
     Route: 048
     Dates: start: 20170601, end: 20170601
  3. MOXIFLOXACIN TAB 400MG, 400 MG [Suspect]
     Active Substance: MOXIFLOXACIN
     Indication: PYREXIA
     Dosage: ?          QUANTITY:1 ?L?NBTFLL?;?1 TABLET DAILY ONCE DAILY BY MOUTH?
     Route: 048
     Dates: start: 20170601, end: 20170601

REACTIONS (2)
  - Angioedema [None]
  - Pharyngeal oedema [None]

NARRATIVE: CASE EVENT DATE: 20170601
